FAERS Safety Report 14482093 (Version 1)
Quarter: 2018Q1

REPORT INFORMATION
  Report Type: Spontaneous
  Country: GR (occurrence: GR)
  Receive Date: 20180202
  Receipt Date: 20180202
  Transmission Date: 20180509
  Serious: Yes (Other)
  Sender: FDA-Public Use
  Company Number: GR-SA-2017SA197378

PATIENT
  Sex: Female

DRUGS (1)
  1. LEVOCETIRIZINE [Suspect]
     Active Substance: LEVOCETIRIZINE
     Indication: RHINITIS ALLERGIC
     Route: 048
     Dates: start: 20170502, end: 20170517

REACTIONS (2)
  - Premature delivery [Unknown]
  - Pregnancy [Unknown]

NARRATIVE: CASE EVENT DATE: 20170503
